FAERS Safety Report 8239547-9 (Version None)
Quarter: 2012Q1

REPORT INFORMATION
  Report Type: 
  Country: None (occurrence: None)
  Receive Date: 20120309
  Receipt Date: 20110309
  Transmission Date: 20120608
  Serious: Yes (Other)
  Sender: FDA-Public Use
  Company Number: PHHY2010US74628

PATIENT
  Age: 35 Year
  Sex: Female

DRUGS (8)
  1. VITAMIN D [Concomitant]
  2. RITALIN [Concomitant]
  3. MOTRIN [Concomitant]
  4. FOLIC ACID [Concomitant]
  5. ORTHO TRI-CYCLEN [Concomitant]
  6. EXTAVIA [Suspect]
     Indication: MULTIPLE SCLEROSIS
     Dosage: 0.25 MG, QOD, SUBCUTANEOUS
     Route: 058
     Dates: start: 20100811
  7. PROZAC [Concomitant]
  8. VITAMIN B12 [Concomitant]

REACTIONS (9)
  - DEPRESSION [None]
  - VITAMIN B12 DECREASED [None]
  - SNEEZING [None]
  - PYREXIA [None]
  - FATIGUE [None]
  - INJECTION SITE REACTION [None]
  - SINUS DISORDER [None]
  - PAIN IN EXTREMITY [None]
  - INFLUENZA [None]
